FAERS Safety Report 21782712 (Version 1)
Quarter: 2022Q4

REPORT INFORMATION
  Report Type: Spontaneous
  Country: CN (occurrence: CN)
  Receive Date: 20221227
  Receipt Date: 20221227
  Transmission Date: 20230113
  Serious: No
  Sender: FDA-Public Use
  Company Number: CN-PFIZER INC-202201382509

PATIENT
  Age: 92 Year
  Sex: Male

DRUGS (1)
  1. PAXLOVID [Suspect]
     Active Substance: NIRMATRELVIR\RITONAVIR
     Indication: COVID-19 treatment
     Dosage: UNK
     Route: 048
     Dates: start: 202212, end: 202212

REACTIONS (2)
  - Suspected counterfeit product [Unknown]
  - Counterfeit product administered [Unknown]

NARRATIVE: CASE EVENT DATE: 20221201
